FAERS Safety Report 9284330 (Version 2)
Quarter: 2013Q3

REPORT INFORMATION
  Report Type: Report from Study
  Country: DE (occurrence: DE)
  Receive Date: 20130510
  Receipt Date: 20130711
  Transmission Date: 20140515
  Serious: Yes (Hospitalization)
  Sender: FDA-Public Use
  Company Number: DE-ABBOTT-13P-062-1086465-00

PATIENT
  Sex: Female
  Weight: 67 kg

DRUGS (10)
  1. HUMIRA [Suspect]
     Indication: RHEUMATOID ARTHRITIS
     Route: 050
     Dates: start: 20120508, end: 20130129
  2. HUMIRA [Suspect]
     Route: 050
     Dates: start: 20130226
  3. NON STEROIDAL ANTIRHEUMATIC DRUG [Concomitant]
     Indication: RHEUMATOID ARTHRITIS
  4. AMLOBETA [Concomitant]
     Indication: HYPERTENSION
     Route: 048
  5. NORTRILEN [Concomitant]
     Indication: MENTAL DISORDER
  6. IBUPROFEN [Concomitant]
     Indication: RHEUMATOID ARTHRITIS
     Route: 048
     Dates: start: 20130204
  7. IBUPROFEN [Concomitant]
     Indication: SURGERY
  8. LEFLUNOMID [Concomitant]
     Indication: RHEUMATOID ARTHRITIS
     Route: 048
     Dates: start: 20120815
  9. TARGIN [Concomitant]
     Indication: RHEUMATOID ARTHRITIS
     Dosage: 10/5 MG
     Route: 048
     Dates: start: 20130204
  10. TARGIN [Concomitant]
     Indication: SURGERY

REACTIONS (3)
  - Morton^s neuralgia [Recovered/Resolved]
  - Osteoarthritis [Unknown]
  - Foot deformity [Recovered/Resolved]
